FAERS Safety Report 14200582 (Version 1)
Quarter: 2017Q4

REPORT INFORMATION
  Report Type: Spontaneous
  Country: US (occurrence: US)
  Receive Date: 20171117
  Receipt Date: 20171117
  Transmission Date: 20180321
  Serious: Yes (Hospitalization)
  Sender: FDA-Public Use
  Company Number: US-NOVOPROD-533164

PATIENT
  Age: 70 Year
  Sex: Male
  Weight: 82.54 kg

DRUGS (5)
  1. LANTUS [Suspect]
     Active Substance: INSULIN GLARGINE
     Indication: TYPE 2 DIABETES MELLITUS
     Dosage: 18-20 U BID
     Route: 058
     Dates: end: 201701
  2. METFORMIN [Concomitant]
     Active Substance: METFORMIN HYDROCHLORIDE
     Indication: TYPE 2 DIABETES MELLITUS
     Dosage: 1 G, BID
  3. NOVOLOG [Suspect]
     Active Substance: INSULIN ASPART
     Indication: TYPE 2 DIABETES MELLITUS
     Dosage: 12 U, BID
     Route: 058
     Dates: end: 201701
  4. NOVOLOG [Suspect]
     Active Substance: INSULIN ASPART
     Dosage: 12 U, BID
     Route: 058
     Dates: start: 2017
  5. LANTUS [Suspect]
     Active Substance: INSULIN GLARGINE
     Dosage: 18-20 U BID
     Route: 058
     Dates: start: 2017

REACTIONS (3)
  - Nasopharyngitis [Recovered/Resolved]
  - Drug dose omission [Recovered/Resolved]
  - Diabetic ketoacidosis [Recovered/Resolved]

NARRATIVE: CASE EVENT DATE: 201701
